FAERS Safety Report 17157926 (Version 1)
Quarter: 2019Q4

REPORT INFORMATION
  Report Type: Spontaneous
  Country: US (occurrence: US)
  Receive Date: 20191213
  Receipt Date: 20191213
  Transmission Date: 20200122
  Serious: Yes (Life-Threatening, Hospitalization, Disabling, Other)
  Sender: FDA-Public Use
  Company Number: None

PATIENT
  Age: 68 Year
  Sex: Female
  Weight: 65.25 kg

DRUGS (4)
  1. FOSAMAX [Suspect]
     Active Substance: ALENDRONATE SODIUM
     Indication: OSTEOPOROSIS
     Dosage: ?          QUANTITY:1 CAPSULE(S);?
     Route: 048
     Dates: start: 19970601, end: 20110311
  2. SYNTHROID  0.1 MG [Concomitant]
  3. IRON SUPPLEMENTS [Concomitant]
     Active Substance: IRON
  4. ATORVASTATIN 20 MG [Concomitant]
     Active Substance: ATORVASTATIN

REACTIONS (4)
  - Bone pain [None]
  - Femur fracture [None]
  - Hand fracture [None]
  - Rib fracture [None]

NARRATIVE: CASE EVENT DATE: 20110310
